FAERS Safety Report 8086193-6 (Version None)
Quarter: 2012Q1

REPORT INFORMATION
  Report Type: 
  Country: None (occurrence: None)
  Receive Date: 20120128
  Receipt Date: 20110426
  Transmission Date: 20120608
  Serious: No
  Sender: FDA-Public Use
  Company Number: US-ABBOTT-11P-163-0721777-00

PATIENT
  Age: 64 Year
  Sex: Female

DRUGS (10)
  1. ZETIA [Concomitant]
     Indication: BLOOD CHOLESTEROL INCREASED
     Dosage: IN THE MORNING
  2. WELCHOL [Concomitant]
     Indication: BLOOD GLUCOSE INCREASED
     Dosage: 3 IN THE MORNING AND 3 IN THE EVENING
  3. JANUVIA [Concomitant]
     Indication: DIABETES MELLITUS
     Dosage: IN THE MORNING
  4. HUMIRA [Suspect]
     Indication: PSORIASIS
     Dates: start: 20110425
  5. WELCHOL [Concomitant]
     Indication: BLOOD CHOLESTEROL INCREASED
  6. FISH OIL [Concomitant]
     Indication: BLOOD CHOLESTEROL INCREASED
  7. LISINOPRIL [Concomitant]
     Indication: PROTEIN TOTAL INCREASED
     Dosage: IN THE MORNING
  8. ASPIRIN [Concomitant]
     Indication: CARDIOVASCULAR DISORDER
     Dosage: IN THE MORNING
  9. METFFORMIN HYDROCHLORIDE [Concomitant]
     Indication: DIABETES MELLITUS
  10. GLYBURIDE [Concomitant]
     Indication: DIABETES MELLITUS
     Dosage: IN THE MORNING

REACTIONS (2)
  - INFLUENZA LIKE ILLNESS [None]
  - PAIN IN EXTREMITY [None]
